FAERS Safety Report 6371496-3 (Version None)
Quarter: 2009Q3

REPORT INFORMATION
  Report Type: 
  Country: None (occurrence: None)
  Receive Date: 20090923
  Receipt Date: 20080812
  Transmission Date: 20100115
  Serious: Yes (Other)
  Sender: FDA-Public Use
  Company Number: US-ASTRAZENECA-2007UW09251

PATIENT
  Age: 54 Year
  Sex: Male
  Weight: 130.2 kg

DRUGS (13)
  1. SEROQUEL [Suspect]
     Indication: BIPOLAR DISORDER
     Route: 048
     Dates: start: 20020101, end: 20060701
  2. SEROQUEL [Suspect]
     Indication: SCHIZOPHRENIA
     Route: 048
     Dates: start: 20020101, end: 20060701
  3. ZYPREXA [Suspect]
     Dates: end: 20020101
  4. RISPERDAL [Concomitant]
  5. HALDOL [Concomitant]
  6. NAVANE [Concomitant]
  7. SOLIAN [Concomitant]
  8. STELAZINE [Concomitant]
  9. THORAZINE [Concomitant]
  10. TRILAFON [Concomitant]
  11. DEPAKOTE [Concomitant]
  12. TEGRETOL [Concomitant]
  13. LITHIUM [Concomitant]

REACTIONS (3)
  - DIABETES MELLITUS [None]
  - PANCREATITIS [None]
  - TARDIVE DYSKINESIA [None]
